FAERS Safety Report 5012271-1 (Version None)
Quarter: 2006Q2

REPORT INFORMATION
  Report Type: 
  Country: None (occurrence: None)
  Receive Date: 20060526
  Receipt Date: 20060517
  Transmission Date: 20061013
  Serious: Yes (Hospitalization, Other)
  Sender: FDA-Public Use
  Company Number: FR-ABBOTT-06P-056-0333709-00

PATIENT
  Sex: Female

DRUGS (2)
  1. SIBUTRAL [Suspect]
     Indication: OVERWEIGHT
     Route: 048
     Dates: start: 20010703
  2. SOY ISOFLAVONES [Concomitant]
     Indication: DRUG USE FOR UNKNOWN INDICATION
     Route: 048
     Dates: start: 20010703, end: 20011001

REACTIONS (6)
  - CATARACT [None]
  - EYE DISORDER [None]
  - RETINAL HAEMORRHAGE [None]
  - RETINAL VEIN THROMBOSIS [None]
  - VISUAL ACUITY REDUCED [None]
  - VITREOUS DISORDER [None]
